FAERS Safety Report 4701581-0 (Version None)
Quarter: 2005Q2

REPORT INFORMATION
  Report Type: 
  Country: None (occurrence: None)
  Receive Date: 20050627
  Receipt Date: 20050614
  Transmission Date: 20051028
  Serious: Yes (Other)
  Sender: FDA-Public Use
  Company Number: 2005089535

PATIENT
  Age: 75 Year
  Sex: Male

DRUGS (1)
  1. XALATAN [Suspect]
     Indication: GLAUCOMA
     Dosage: 1 IN 1 D OPTHALAMIC
     Route: 047
     Dates: start: 20020605

REACTIONS (1)
  - CATARACT [None]
